FAERS Safety Report 9368860 (Version 1)
Quarter: 2013Q2

REPORT INFORMATION
  Report Type: Spontaneous
  Country: AU (occurrence: AU)
  Receive Date: 20130626
  Receipt Date: 20130626
  Transmission Date: 20140414
  Serious: Yes (Hospitalization)
  Sender: FDA-Public Use
  Company Number: AU-ABBOTT-13X-008-1109890-00

PATIENT
  Age: 12 Month
  Sex: Male

DRUGS (3)
  1. SODIUM VALPROATE [Suspect]
     Indication: PRODUCT USED FOR UNKNOWN INDICATION
     Dosage: 240 MILLIGRAM(S) ;DAILY
     Route: 065
  2. SODIUM VALPROATE [Suspect]
  3. BACLOFEN [Suspect]
     Indication: PRODUCT USED FOR UNKNOWN INDICATION
     Dosage: 5 MILLIGRAM(S) ;DAILY
     Route: 065
     Dates: start: 20130327

REACTIONS (2)
  - Myoclonus [Unknown]
  - Irritability [Unknown]
